FAERS Safety Report 21227619 (Version 1)
Quarter: 2022Q3

REPORT INFORMATION
  Report Type: Spontaneous
  Country: US (occurrence: US)
  Receive Date: 20220818
  Receipt Date: 20220818
  Transmission Date: 20221027
  Serious: Yes (Other)
  Sender: FDA-Public Use
  Company Number: US-PFIZER INC-PV202200044214

PATIENT
  Age: 72 Year
  Sex: Female

DRUGS (1)
  1. XELJANZ [Suspect]
     Active Substance: TOFACITINIB CITRATE
     Indication: Colitis ulcerative
     Dosage: 10 MG, 2X/DAY
     Route: 048
     Dates: start: 20220505

REACTIONS (8)
  - Rectal haemorrhage [Unknown]
  - Herpes zoster [Unknown]
  - Haemorrhoidal haemorrhage [Unknown]
  - Constipation [Recovering/Resolving]
  - Condition aggravated [Unknown]
  - Anaemia [Unknown]
  - Fatigue [Unknown]
  - Thyroid disorder [Unknown]
